FAERS Safety Report 14599711 (Version 1)
Quarter: 2018Q1

REPORT INFORMATION
  Report Type: Other
  Country: AT (occurrence: AT)
  Receive Date: 20180305
  Receipt Date: 20180305
  Transmission Date: 20180509
  Serious: Yes (Other)
  Sender: FDA-Public Use
  Company Number: AT-GLENMARK PHARMACEUTICALS-2009GMK032841

PATIENT

DRUGS (3)
  1. QUETIAPINE. [Suspect]
     Active Substance: QUETIAPINE
     Indication: PRODUCT USED FOR UNKNOWN INDICATION
     Dosage: 1 DF= UNITS NOT SPECIFIED; DOSE WAS INCREASED TO 75 MG ON 13JAN09 ()
     Route: 048
  2. ABILIFY [Suspect]
     Active Substance: ARIPIPRAZOLE
     Indication: BIPOLAR DISORDER
     Dosage: 1 DF= UNITS NOT SPECIFIED    DOSE WAS INCREASED FROM 15 MG/DAY TO 20 MG/DAY ON 13JAN09
     Route: 048
     Dates: start: 20060101
  3. LAMOTRIGINE. [Suspect]
     Active Substance: LAMOTRIGINE
     Indication: PRODUCT USED FOR UNKNOWN INDICATION
     Dosage: 1 DF= UNITS NOT SPECIFIED; DOSE WAS 400 MG/DAY ()
     Route: 048

REACTIONS (4)
  - Extrapyramidal disorder [Recovered/Resolved]
  - Suicide attempt [Recovered/Resolved]
  - Intentional overdose [Unknown]
  - Sedation [Unknown]

NARRATIVE: CASE EVENT DATE: 20090320
